FAERS Safety Report 6157879-5 (Version None)
Quarter: 2009Q2

REPORT INFORMATION
  Report Type: 
  Country: None (occurrence: None)
  Receive Date: 20090414
  Receipt Date: 20090330
  Transmission Date: 20091009
  Serious: Yes (Death)
  Sender: FDA-Public Use
  Company Number: 2008000911

PATIENT
  Age: 80 Year
  Sex: Female

DRUGS (3)
  1. ERLOTINIB (ERLOTINIB HCL) (TABLET) (ERLOTINIB HCL) [Suspect]
     Indication: LUNG ADENOCARCINOMA
     Dosage: (100 MG,QD),ORAL ; (150 MG,QD),ORAL ; (100 MG,QD),ORAL
     Route: 048
     Dates: start: 20080517, end: 20080530
  2. ERLOTINIB (ERLOTINIB HCL) (TABLET) (ERLOTINIB HCL) [Suspect]
     Indication: LUNG ADENOCARCINOMA
     Dosage: (100 MG,QD),ORAL ; (150 MG,QD),ORAL ; (100 MG,QD),ORAL
     Route: 048
     Dates: start: 20080304
  3. ERLOTINIB (ERLOTINIB HCL) (TABLET) (ERLOTINIB HCL) [Suspect]
     Indication: LUNG ADENOCARCINOMA
     Dosage: (100 MG,QD),ORAL ; (150 MG,QD),ORAL ; (100 MG,QD),ORAL
     Route: 048
     Dates: start: 20080531

REACTIONS (5)
  - CORNEAL EROSION [None]
  - ECZEMA ASTEATOTIC [None]
  - LUNG ADENOCARCINOMA [None]
  - MALIGNANT NEOPLASM PROGRESSION [None]
  - MENINGEAL DISORDER [None]
